FAERS Safety Report 10556713 (Version 1)
Quarter: 2014Q4

REPORT INFORMATION
  Report Type: Spontaneous
  Country: ES (occurrence: ES)
  Receive Date: 20141031
  Receipt Date: 20141031
  Transmission Date: 20150529
  Serious: Yes (Other)
  Sender: FDA-Public Use
  Company Number: ES-BAYER-2014-154767

PATIENT
  Age: 95 Year
  Sex: Male

DRUGS (2)
  1. ZAMENE [Concomitant]
     Active Substance: DEFLAZACORT
     Indication: CATARRH
     Route: 048
     Dates: start: 20141012
  2. ACTIRA [Suspect]
     Active Substance: MOXIFLOXACIN HYDROCHLORIDE
     Indication: CATARRH
     Route: 048
     Dates: start: 20141012

REACTIONS (1)
  - Diarrhoea haemorrhagic [Unknown]

NARRATIVE: CASE EVENT DATE: 20141012
